APPROVED DRUG PRODUCT: RISEDRONATE SODIUM
Active Ingredient: RISEDRONATE SODIUM
Strength: 5MG
Dosage Form/Route: TABLET;ORAL
Application: A077132 | Product #001 | TE Code: AB
Applicant: TEVA PHARMACEUTICALS USA
Approved: Oct 5, 2007 | RLD: No | RS: No | Type: RX